FAERS Safety Report 7291382-4 (Version None)
Quarter: 2011Q1

REPORT INFORMATION
  Report Type: 
  Country: None (occurrence: None)
  Receive Date: 20110214
  Receipt Date: 20110204
  Transmission Date: 20110831
  Serious: Yes (Death)
  Sender: FDA-Public Use
  Company Number: B0698020A

PATIENT
  Age: 88 Year
  Sex: Female

DRUGS (13)
  1. TAZOCIN [Suspect]
     Dosage: 13.5G PER DAY
     Route: 042
     Dates: start: 20090910, end: 20090914
  2. SIMVASTATIN [Concomitant]
     Dosage: 40MG PER DAY
  3. PARACETAMOL [Concomitant]
  4. TAZOCIN [Suspect]
     Indication: CHOLECYSTITIS
     Route: 042
     Dates: start: 20090909, end: 20090909
  5. ENOXAPARIN SODIUM [Concomitant]
     Route: 058
  6. ISOSORBIDE MONONITRATE [Concomitant]
     Dosage: 50MG PER DAY
  7. METRONIDAZOLE [Suspect]
     Indication: CHOLECYSTITIS
     Route: 042
     Dates: start: 20090909
  8. LEVOTHYROXINE SODIUM [Concomitant]
     Dosage: 150MCG PER DAY
  9. NICORANDIL [Concomitant]
     Dosage: 20MG PER DAY
  10. HYPROMELLOSE [Concomitant]
     Dosage: 4IUAX PER DAY
  11. CLOPIDOGREL [Concomitant]
     Dosage: 75MG PER DAY
  12. AMOXICILLIN [Suspect]
     Indication: CHOLECYSTITIS
     Route: 042
     Dates: start: 20090909
  13. BISOPROLOL [Concomitant]
     Dosage: 1.25MG PER DAY

REACTIONS (11)
  - CLOSTRIDIAL INFECTION [None]
  - HYPOPHAGIA [None]
  - ANAEMIA [None]
  - DIARRHOEA [None]
  - ASTHENIA [None]
  - MALAISE [None]
  - GENERAL PHYSICAL HEALTH DETERIORATION [None]
  - WEIGHT DECREASED [None]
  - CYANOSIS [None]
  - ABDOMINAL PAIN LOWER [None]
  - BLOOD PRESSURE DECREASED [None]
